FAERS Safety Report 8440920-4 (Version None)
Quarter: 2012Q2

REPORT INFORMATION
  Report Type: 
  Country: None (occurrence: None)
  Receive Date: 20120615
  Receipt Date: 20110613
  Transmission Date: 20120825
  Serious: No
  Sender: FDA-Public Use
  Company Number: US-NOVEN-11US002614

PATIENT
  Age: 42 Year
  Sex: Female

DRUGS (4)
  1. DAYTRANA [Suspect]
     Indication: DEPRESSION
     Dosage: 20 MG, QD
     Route: 064
     Dates: start: 20110601
  2. DAYTRANA [Suspect]
     Indication: DISTURBANCE IN ATTENTION
  3. DAYTRANA [Suspect]
     Indication: ANXIETY
     Dosage: 10 MG, QD
     Route: 062
     Dates: start: 20110501, end: 20110601
  4. RITALIN [Concomitant]
     Indication: DISTURBANCE IN ATTENTION
     Dosage: 5 MG, QD
     Route: 048

REACTIONS (6)
  - APPLICATION SITE DRYNESS [None]
  - OFF LABEL USE [None]
  - APPLICATION SITE VESICLES [None]
  - YAWNING [None]
  - APPLICATION SITE ERYTHEMA [None]
  - FATIGUE [None]
